FAERS Safety Report 8947788 (Version 1)
Quarter: 2012Q4

REPORT INFORMATION
  Report Type: 
  Country: US (occurrence: US)
  Receive Date: 20121204
  Receipt Date: 20121204
  Transmission Date: 20130627
  Serious: Yes (Death, Other)
  Sender: FDA-Public Use
  Company Number: PHHY2012US109994

PATIENT
  Sex: Male

DRUGS (1)
  1. DIGOXIN [Suspect]
     Indication: FOETAL ARRHYTHMIA
     Route: 064

REACTIONS (6)
  - Cardiopulmonary failure [Fatal]
  - Bradycardia [Fatal]
  - Respiration abnormal [Fatal]
  - Apgar score low [Fatal]
  - Premature baby [Unknown]
  - Foetal exposure during pregnancy [Unknown]
